FAERS Safety Report 8947706 (Version 1)
Quarter: 2012Q4

REPORT INFORMATION
  Report Type: Spontaneous
  Country: DK (occurrence: None)
  Receive Date: 20121127
  Receipt Date: 20121127
  Transmission Date: 20130627
  Serious: Yes (Hospitalization)
  Sender: FDA-Public Use
  Company Number: 2012MA013484

PATIENT
  Age: 60 Year
  Sex: Male
  Weight: 66.9 kg

DRUGS (20)
  1. TRAMADOL HYDROCHLORIDE [Suspect]
     Indication: BACK PAIN
     Route: 048
     Dates: end: 200806
  2. PARACETAMOL [Concomitant]
  3. LANSOPRAZOLE [Concomitant]
  4. ACETYLSALICYLIC ACID [Concomitant]
  5. SIMVASTATIN [Concomitant]
  6. ALFUZOSIN [Concomitant]
  7. ASCORBIC ACID [Concomitant]
  8. IRBESARTAN [Concomitant]
  9. LOPRAZOLAM [Concomitant]
  10. TESTOSTERONE [Concomitant]
  11. MACROGOL [Concomitant]
  12. FUROSEMIDE [Concomitant]
  13. SALMETEROL/FLUTICASONE [Concomitant]
  14. GAVISCON [Concomitant]
  15. BALNEUM [Concomitant]
  16. TRIMOVATE [Concomitant]
  17. BETAMETHASONE [Concomitant]
  18. SALBUTAMOL [Concomitant]
  19. DICLOFENAC [Concomitant]
  20. NAPROXEN [Concomitant]

REACTIONS (13)
  - Chest pain [None]
  - Asthma exercise induced [None]
  - Proctalgia [None]
  - Cough [None]
  - Fall [None]
  - Inguinal hernia [None]
  - Ear discomfort [None]
  - Otitis externa [None]
  - Spinal osteoarthritis [None]
  - Labyrinthitis [None]
  - Bronchitis [None]
  - Pruritus [None]
  - Coordination abnormal [None]
